FAERS Safety Report 6617530-4 (Version None)
Quarter: 2010Q1

REPORT INFORMATION
  Report Type: 
  Country: None (occurrence: None)
  Receive Date: 20100302
  Receipt Date: 20100218
  Transmission Date: 20100710
  Serious: Yes (Other)
  Sender: FDA-Public Use
  Company Number: JPI-P-009795

PATIENT
  Age: 75 Year
  Sex: Male

DRUGS (12)
  1. XYREM [Suspect]
     Indication: NARCOLEPSY
     Dosage: 4.5 GM (2.25 GM, 2 IN 1 D), ORAL
     Route: 048
     Dates: start: 20090521
  2. INSULIN [Concomitant]
  3. ASPIRIN [Concomitant]
  4. GALANTAMINE HYDROBROMIDE [Concomitant]
  5. GABAPENTIN [Concomitant]
  6. MODAFINIL [Concomitant]
  7. PAROXETINE HCL [Concomitant]
  8. VITAMIN B21 [Concomitant]
  9. ATENOLOL [Concomitant]
  10. SIMVASTATIN [Concomitant]
  11. FISH OIL [Concomitant]
  12. TRAZODONE HCL [Concomitant]

REACTIONS (1)
  - PROSTATE CANCER [None]
